FAERS Safety Report 9522926 (Version 1)
Quarter: 2013Q3

REPORT INFORMATION
  Report Type: Spontaneous
  Country: BE (occurrence: BE)
  Receive Date: 20130913
  Receipt Date: 20130913
  Transmission Date: 20140515
  Serious: Yes (Other)
  Sender: FDA-Public Use
  Company Number: BE-JNJFOC-20130905246

PATIENT
  Age: 46 Year
  Sex: Male

DRUGS (13)
  1. REMICADE [Suspect]
     Indication: COLITIS ULCERATIVE
     Dosage: INDUCTION MAINTENANCE
     Route: 042
     Dates: start: 200609, end: 200810
  2. REMICADE [Suspect]
     Indication: COLITIS ULCERATIVE
     Dosage: THERAPY INTERRUPTED
     Route: 042
     Dates: start: 200810
  3. REMICADE [Suspect]
     Indication: COLITIS ULCERATIVE
     Dosage: WEEK 2, NO MAINTENANCE DUE TO REIMBURSEMENT ISSUE
     Route: 042
     Dates: start: 200512
  4. REMICADE [Suspect]
     Indication: COLITIS ULCERATIVE
     Dosage: WEEK 0, 2, 6 WITH IRON
     Route: 042
     Dates: start: 20091202
  5. REMICADE [Suspect]
     Indication: COLITIS ULCERATIVE
     Dosage: COMPASSIONATE USE
     Route: 042
     Dates: start: 20051115
  6. 5-AMINOSALICYLIC ACID [Suspect]
     Indication: COLITIS
     Route: 054
     Dates: start: 2004
  7. 5-AMINOSALICYLIC ACID [Suspect]
     Indication: COLITIS
     Route: 054
     Dates: start: 200609
  8. 5-AMINOSALICYLIC ACID [Suspect]
     Indication: COLITIS
     Route: 054
     Dates: start: 2004
  9. 5-AMINOSALICYLIC ACID [Suspect]
     Indication: COLITIS
     Route: 054
     Dates: start: 200609
  10. AZATHIOPRINE [Suspect]
     Indication: COLITIS ULCERATIVE
     Route: 065
     Dates: start: 200609
  11. AZATHIOPRINE [Suspect]
     Indication: COLITIS ULCERATIVE
     Route: 065
     Dates: start: 2005
  12. AZATHIOPRINE [Suspect]
     Indication: COLITIS ULCERATIVE
     Dosage: ELECTIVELY INTERRUPTED
     Route: 065
     Dates: end: 200704
  13. HYDROCORTISONE [Concomitant]
     Indication: PROPHYLAXIS
     Dosage: FIRST THREE INFUSIONS
     Route: 065
     Dates: start: 20091202

REACTIONS (13)
  - Lung infiltration [Unknown]
  - Sleep apnoea syndrome [Unknown]
  - Pleural effusion [Unknown]
  - Lymphadenopathy mediastinal [Recovering/Resolving]
  - Chronic granulomatous disease [Unknown]
  - Tuberculosis [Unknown]
  - Colitis [Unknown]
  - Rectal haemorrhage [Unknown]
  - Pleural fibrosis [Unknown]
  - Diarrhoea [Unknown]
  - Cough [Not Recovered/Not Resolved]
  - Pyrexia [Recovered/Resolved]
  - Fatigue [Unknown]
